FAERS Safety Report 10270353 (Version 1)
Quarter: 2014Q2

REPORT INFORMATION
  Report Type: Spontaneous
  Country: GB (occurrence: None)
  Receive Date: 20140627
  Receipt Date: 20140627
  Transmission Date: 20141212
  Serious: Yes (Other)
  Sender: FDA-Public Use
  Company Number: 2014GB00581

PATIENT
  Age: 61 Year
  Sex: Male

DRUGS (2)
  1. GEMCITABINE (GEMCITABINE) INJECTION [Suspect]
     Indication: BILE DUCT CANCER
     Dosage: 1000 MG/M2, ON DAY 1 AND DAY 8 OF A 21 DAY CYCLE
  2. CISPLATIN (CISPLATIN) [Suspect]
     Indication: BILE DUCT CANCER
     Dosage: 25 MG/M2, ON DAY 1 AND DAY 8 OF A 21 DAY CYCLE

REACTIONS (3)
  - Pancytopenia [None]
  - Fluid retention [None]
  - Fatigue [None]
